FAERS Safety Report 9427955 (Version 1)
Quarter: 2013Q3

REPORT INFORMATION
  Report Type: Report from Study
  Country: US (occurrence: US)
  Receive Date: 20130730
  Receipt Date: 20130730
  Transmission Date: 20140515
  Serious: No
  Sender: FDA-Public Use
  Company Number: US-ABBOTT-12P-163-0971495-00

PATIENT
  Age: 64 Year
  Sex: Female

DRUGS (7)
  1. NIASPAN (COATED) [Suspect]
     Indication: BLOOD TRIGLYCERIDES INCREASED
     Dates: start: 20120816, end: 20120824
  2. NIASPAN (COATED) [Suspect]
  3. ASPIRIN [Concomitant]
     Indication: PRODUCT USED FOR UNKNOWN INDICATION
  4. OMEGA RED [Concomitant]
     Indication: PRODUCT USED FOR UNKNOWN INDICATION
  5. FISH OIL [Concomitant]
     Indication: PRODUCT USED FOR UNKNOWN INDICATION
  6. CRESTOR [Concomitant]
     Indication: PRODUCT USED FOR UNKNOWN INDICATION
  7. TRIPLEX [Concomitant]
     Indication: PRODUCT USED FOR UNKNOWN INDICATION

REACTIONS (12)
  - Ear discomfort [Unknown]
  - Flushing [Unknown]
  - Erythema [Unknown]
  - Erythema [Unknown]
  - Erythema [Unknown]
  - Paraesthesia [Unknown]
  - Flushing [Unknown]
  - Pruritus [Unknown]
  - Skin burning sensation [Unknown]
  - Flushing [Unknown]
  - Pruritus [Unknown]
  - Skin burning sensation [Unknown]
